FAERS Safety Report 18148880 (Version 1)
Quarter: 2020Q3

REPORT INFORMATION
  Report Type: Spontaneous
  Country: US (occurrence: US)
  Receive Date: 20200814
  Receipt Date: 20200814
  Transmission Date: 20201103
  Serious: No
  Sender: FDA-Public Use
  Company Number: US-CELGENEUS-USA-20200801216

PATIENT
  Sex: Male

DRUGS (2)
  1. POMALYST [Suspect]
     Active Substance: POMALIDOMIDE
     Indication: PLASMA CELL MYELOMA
     Dosage: 3 MILLIGRAM
     Route: 048
     Dates: start: 202006
  2. POMALYST [Suspect]
     Active Substance: POMALIDOMIDE
     Indication: BONE DISORDER
     Dosage: 4 MILLIGRAM
     Route: 048
     Dates: start: 20200207

REACTIONS (2)
  - Adverse drug reaction [Unknown]
  - Hypotension [Unknown]

NARRATIVE: CASE EVENT DATE: 2020
